FAERS Safety Report 5328010-0 (Version None)
Quarter: 2007Q2

REPORT INFORMATION
  Report Type: 
  Country: None (occurrence: None)
  Receive Date: 20070517
  Receipt Date: 20070503
  Transmission Date: 20071010
  Serious: Yes (Other)
  Sender: FDA-Public Use
  Company Number: US-SHR-US-2007-016324

PATIENT

DRUGS (2)
  1. CAMPATH [Suspect]
     Indication: STEM CELL TRANSPLANT
     Dosage: DOSING NOT REPORTED
     Route: 042
  2. CYCLOPHOSPHAMIDE [Suspect]
     Indication: STEM CELL TRANSPLANT
     Route: 042

REACTIONS (2)
  - AUTOIMMUNE DISORDER [None]
  - PANCYTOPENIA [None]
